FAERS Safety Report 19090551 (Version 1)
Quarter: 2021Q2

REPORT INFORMATION
  Report Type: Spontaneous
  Country: DE (occurrence: DE)
  Receive Date: 20210405
  Receipt Date: 20210405
  Transmission Date: 20210717
  Serious: Yes (Other)
  Sender: FDA-Public Use
  Company Number: DE-AUROBINDO-AUR-APL-2021-013908

PATIENT
  Age: 67 Year
  Sex: Female

DRUGS (1)
  1. VALSARTAN FILM?COATED TABLET [Suspect]
     Active Substance: VALSARTAN
     Indication: BLOOD PRESSURE ABNORMAL
     Dosage: UNK
     Route: 065

REACTIONS (4)
  - Hypertensive crisis [Unknown]
  - Pigmentation disorder [Unknown]
  - Haemorrhage [Unknown]
  - Haemangioma [Unknown]

NARRATIVE: CASE EVENT DATE: 2020
